FAERS Safety Report 12399941 (Version 3)
Quarter: 2017Q1

REPORT INFORMATION
  Report Type: Report from Study
  Country: US (occurrence: US)
  Receive Date: 20160524
  Receipt Date: 20170126
  Transmission Date: 20170428
  Serious: Yes (Hospitalization, Other)
  Sender: FDA-Public Use
  Company Number: US-GILEAD-2016-0215325

PATIENT
  Age: 78 Year
  Sex: Female

DRUGS (3)
  1. ELIQUIS [Concomitant]
     Active Substance: APIXABAN
  2. AMBRISENTAN [Suspect]
     Active Substance: AMBRISENTAN
     Indication: PRODUCT USED FOR UNKNOWN INDICATION
     Dosage: 5 MG, QD
     Route: 065
  3. SILDENAFIL. [Concomitant]
     Active Substance: SILDENAFIL

REACTIONS (12)
  - Diarrhoea [Unknown]
  - Hip fracture [Unknown]
  - Insomnia [Unknown]
  - Malaise [Unknown]
  - Productive cough [Unknown]
  - Cardiac failure congestive [Unknown]
  - Scar [Unknown]
  - Dizziness [Unknown]
  - Pneumonia [Unknown]
  - Psychomotor hyperactivity [Unknown]
  - Herpes zoster [Unknown]
  - Peripheral swelling [Unknown]
